FAERS Safety Report 11139365 (Version 1)
Quarter: 2015Q2

REPORT INFORMATION
  Report Type: Spontaneous
  Country: US (occurrence: None)
  Receive Date: 20150526
  Receipt Date: 20150526
  Transmission Date: 20150821
  Serious: Yes (Other)
  Sender: FDA-Public Use
  Company Number: US-2015CRT000497

PATIENT
  Sex: Female

DRUGS (1)
  1. KORLYM [Suspect]
     Active Substance: MIFEPRISTONE
     Indication: CUSHING^S SYNDROME
     Route: 048
     Dates: start: 201411

REACTIONS (4)
  - Nausea [None]
  - Headache [None]
  - Blood potassium decreased [None]
  - Steroid withdrawal syndrome [None]

NARRATIVE: CASE EVENT DATE: 201504
